FAERS Safety Report 8837876 (Version 3)
Quarter: 2012Q4

REPORT INFORMATION
  Report Type: 
  Country: US (occurrence: US)
  Receive Date: 20121012
  Receipt Date: 20121123
  Transmission Date: 20130627
  Serious: Yes (Other)
  Sender: FDA-Public Use
  Company Number: US-JNJFOC-20120510169

PATIENT
  Age: 59 None
  Sex: Male
  Weight: 83.92 kg

DRUGS (4)
  1. VISINE TOTALITY MULTI SYMPTOM RELIEF [Suspect]
     Indication: DRY EYE
     Dosage: 2 drops in each eye
     Route: 047
     Dates: start: 20120508, end: 20120508
  2. ZOCOR [Concomitant]
     Indication: BLOOD CHOLESTEROL
     Route: 065
  3. SYNTHROID [Concomitant]
     Indication: HYPOTHYROIDISM
     Route: 065
  4. VITAMIN D3 [Concomitant]
     Indication: NUTRITIONAL SUPPORT
     Route: 065

REACTIONS (5)
  - Conjunctivitis [Unknown]
  - Eye irritation [Recovering/Resolving]
  - Eye pain [Recovering/Resolving]
  - Visual acuity reduced [Unknown]
  - Adverse event [Unknown]
